FAERS Safety Report 4356834-5 (Version None)
Quarter: 2004Q2

REPORT INFORMATION
  Report Type: 
  Country: None (occurrence: None)
  Receive Date: 20040507
  Receipt Date: 20040416
  Transmission Date: 20050107
  Serious: Yes (Hospitalization)
  Sender: FDA-Public Use
  Company Number: DE_030911987

PATIENT
  Age: 49 Year
  Sex: Female
  Weight: 52 kg

DRUGS (13)
  1. GEMZAR            (GEMCIITABINE HYDROCHLORIDE) [Suspect]
     Indication: NON-SMALL CELL LUNG CANCER
     Dosage: 1400 MG/ PER INFUSION
     Route: 042
     Dates: start: 20030513
  2. TENORMIN 50     (ATENOLOL) [Concomitant]
  3. DEXAMETHASONE [Concomitant]
  4. PANTOZOL (PANTOPRAZOLE SODIUM) [Concomitant]
  5. THEOPHYLLINE [Concomitant]
  6. COMBAREN [Concomitant]
  7. VERGENTAN (ALIZAPRIDE HYDROCHLORIDE) [Concomitant]
  8. ZOMETA [Concomitant]
  9. ZOFRAN [Concomitant]
  10. AMPHOTERICIN B [Concomitant]
  11. BEPANTHEN (DEXPANTHENOL) [Concomitant]
  12. OFLOXACIN [Concomitant]
  13. DIFLUCAN [Concomitant]

REACTIONS (5)
  - CANDIDIASIS [None]
  - GENERAL PHYSICAL HEALTH DETERIORATION [None]
  - METASTASES TO MENINGES [None]
  - PNEUMONIA FUNGAL [None]
  - TACHYCARDIA [None]
